FAERS Safety Report 16795470 (Version 1)
Quarter: 2019Q3

REPORT INFORMATION
  Report Type: Spontaneous
  Country: ES (occurrence: ES)
  Receive Date: 20190911
  Receipt Date: 20190911
  Transmission Date: 20191005
  Serious: Yes (Hospitalization, Other)
  Sender: FDA-Public Use
  Company Number: ES-JAZZ-2019-ES-012626

PATIENT
  Age: 62 Year
  Sex: Male

DRUGS (1)
  1. VYXEOS [Suspect]
     Active Substance: CYTARABINE\DAUNORUBICIN
     Indication: ACUTE LEUKAEMIA
     Dosage: VYXEOS 44 MG/100 MG POLVO PARA CONCENTRADO PARA SOLUCION PARA PERFUSION
     Route: 042
     Dates: start: 20190612, end: 20190616

REACTIONS (4)
  - Hepatotoxicity [Recovered/Resolved]
  - Anaemia [Recovered/Resolved]
  - Thrombocytopenia [Recovered/Resolved]
  - Rhabdomyolysis [Recovered/Resolved]

NARRATIVE: CASE EVENT DATE: 20190619
